FAERS Safety Report 11265369 (Version 7)
Quarter: 2015Q3

REPORT INFORMATION
  Report Type: Report from Study
  Country: US (occurrence: US)
  Receive Date: 20150713
  Receipt Date: 20150922
  Transmission Date: 20151125
  Serious: Yes (Hospitalization)
  Sender: FDA-Public Use
  Company Number: US-BIOGENIDEC-2015BI072227

PATIENT
  Age: 55 Year
  Sex: Female
  Weight: 51 kg

DRUGS (14)
  1. DIPHENHYDRAMINE HYDROCHLORIDE. [Concomitant]
     Active Substance: DIPHENHYDRAMINE HYDROCHLORIDE
  2. IPRATROPIUM BROMIDE. [Concomitant]
     Active Substance: IPRATROPIUM BROMIDE
  3. TECFIDERA [Suspect]
     Active Substance: DIMETHYL FUMARATE
     Indication: MULTIPLE SCLEROSIS
     Route: 048
     Dates: start: 201407
  4. TECFIDERA [Suspect]
     Active Substance: DIMETHYL FUMARATE
     Indication: MULTIPLE SCLEROSIS
     Route: 048
     Dates: start: 201408
  5. VITAMIN D3 [Concomitant]
     Active Substance: CHOLECALCIFEROL
  6. POLYETHYLENE GLYCOL [Concomitant]
     Active Substance: POLYETHYLENE GLYCOLS
  7. BACLOFEN. [Concomitant]
     Active Substance: BACLOFEN
     Dates: start: 201507
  8. PROAIR HFA [Concomitant]
     Active Substance: ALBUTEROL SULFATE
  9. CLONAZEPAM. [Concomitant]
     Active Substance: CLONAZEPAM
  10. AMPYRA [Concomitant]
     Active Substance: DALFAMPRIDINE
     Indication: MULTIPLE SCLEROSIS
     Route: 048
     Dates: start: 2014, end: 20150801
  11. TRAMADOL HYDROCHLORIDE. [Concomitant]
     Active Substance: TRAMADOL HYDROCHLORIDE
  12. AMPYRA [Concomitant]
     Active Substance: DALFAMPRIDINE
     Indication: MULTIPLE SCLEROSIS
     Dates: start: 20140522, end: 20140627
  13. DULOXETINE HYDROCHLORIDE. [Concomitant]
     Active Substance: DULOXETINE HYDROCHLORIDE
  14. SPIRIVA [Concomitant]
     Active Substance: TIOTROPIUM BROMIDE MONOHYDRATE

REACTIONS (20)
  - Drug ineffective [Unknown]
  - Back pain [Recovered/Resolved]
  - Peroneal nerve palsy [Not Recovered/Not Resolved]
  - Dysstasia [Unknown]
  - Drug hypersensitivity [Unknown]
  - Intervertebral disc protrusion [Not Recovered/Not Resolved]
  - Gait disturbance [Recovered/Resolved]
  - Muscular weakness [Unknown]
  - General physical health deterioration [Unknown]
  - Musculoskeletal stiffness [Unknown]
  - Musculoskeletal disorder [Unknown]
  - Mobility decreased [Unknown]
  - Urinary tract infection [Recovered/Resolved]
  - Feeling abnormal [Not Recovered/Not Resolved]
  - Nephrolithiasis [Not Recovered/Not Resolved]
  - Multiple sclerosis [Not Recovered/Not Resolved]
  - Abasia [Unknown]
  - Dehydration [Recovered/Resolved]
  - Multiple sclerosis relapse [Not Recovered/Not Resolved]
  - Muscle tightness [Not Recovered/Not Resolved]

NARRATIVE: CASE EVENT DATE: 2014
